FAERS Safety Report 16343930 (Version 2)
Quarter: 2019Q2

REPORT INFORMATION
  Report Type: Spontaneous
  Country: JP (occurrence: JP)
  Receive Date: 20190522
  Receipt Date: 20190619
  Transmission Date: 20190711
  Serious: Yes (Death)
  Sender: FDA-Public Use
  Company Number: JP-009507513-1905JPN008167

PATIENT
  Age: 78 Year
  Sex: Female

DRUGS (1)
  1. FIDAXOMICIN [Suspect]
     Active Substance: FIDAXOMICIN
     Indication: ENTERITIS INFECTIOUS
     Dosage: 200 MILLIGRAM, QD
     Route: 048
     Dates: start: 20190128, end: 20190207

REACTIONS (2)
  - Colitis ulcerative [Fatal]
  - Prescribed underdose [Unknown]

NARRATIVE: CASE EVENT DATE: 20190128
